FAERS Safety Report 6253788-1 (Version None)
Quarter: 2009Q3

REPORT INFORMATION
  Report Type: 
  Country: None (occurrence: None)
  Receive Date: 20090702
  Receipt Date: 20090629
  Transmission Date: 20100115
  Serious: Yes (Hospitalization)
  Sender: FDA-Public Use
  Company Number: US-RB-017455-09

PATIENT
  Age: 65 Year
  Sex: Male

DRUGS (1)
  1. SUBUTEX [Suspect]
     Route: 060

REACTIONS (1)
  - CHEST PAIN [None]
